FAERS Safety Report 22379037 (Version 1)
Quarter: 2023Q2

REPORT INFORMATION
  Report Type: Spontaneous
  Country: FR (occurrence: FR)
  Receive Date: 20230529
  Receipt Date: 20230529
  Transmission Date: 20230721
  Serious: Yes (Hospitalization, Other)
  Sender: FDA-Public Use
  Company Number: None

PATIENT
  Age: 22 Year
  Sex: Female
  Weight: 59.5 kg

DRUGS (1)
  1. TRAMADOL HYDROCHLORIDE [Suspect]
     Active Substance: TRAMADOL HYDROCHLORIDE
     Indication: Intentional overdose
     Dosage: 30 DOSAGE FORM, 1/DAY
     Route: 048
     Dates: start: 20230403, end: 20230403

REACTIONS (5)
  - Poisoning deliberate [Recovered/Resolved]
  - Seizure [Recovered/Resolved]
  - Pneumonia aspiration [Recovering/Resolving]
  - Coma [Recovered/Resolved]
  - Intentional overdose [Unknown]

NARRATIVE: CASE EVENT DATE: 20230403
